FAERS Safety Report 5001671-1 (Version None)
Quarter: 2006Q2

REPORT INFORMATION
  Report Type: 
  Country: None (occurrence: None)
  Receive Date: 20060511
  Receipt Date: 20060511
  Transmission Date: 20061013
  Serious: Yes (Other)
  Sender: FDA-Public Use
  Company Number: None

PATIENT
  Sex: Male
  Weight: 77.1115 kg

DRUGS (2)
  1. ALTACE [Suspect]
     Indication: HYPERTENSION
     Dosage: 2   DAILY   PO
     Route: 048
     Dates: start: 20051101, end: 20060318
  2. ACTOS [Concomitant]

REACTIONS (2)
  - DRUG INEFFECTIVE [None]
  - MYALGIA [None]
